FAERS Safety Report 26071935 (Version 2)
Quarter: 2025Q4

REPORT INFORMATION
  Report Type: Spontaneous
  Country: US (occurrence: US)
  Receive Date: 20251120
  Receipt Date: 20251202
  Transmission Date: 20260118
  Serious: No
  Sender: PFIZER
  Company Number: US-PFIZER INC-202500225145

PATIENT
  Age: 84 Year
  Sex: Male
  Weight: 80.29 kg

DRUGS (2)
  1. VYNDAMAX [Suspect]
     Active Substance: TAFAMIDIS
     Indication: Cardiac amyloidosis
     Dosage: 61 MG, DAILY (1 CAPSULE DAILY 1 DAILY)
     Route: 048
  2. XANAX [Concomitant]
     Active Substance: ALPRAZOLAM
     Dosage: 1 MG, AS NEEDED

REACTIONS (1)
  - Light chain analysis abnormal [Unknown]

NARRATIVE: CASE EVENT DATE: 20201110
